FAERS Safety Report 16986532 (Version 1)
Quarter: 2019Q4

REPORT INFORMATION
  Report Type: Report from Study
  Country: EG (occurrence: EG)
  Receive Date: 20191101
  Receipt Date: 20191101
  Transmission Date: 20200122
  Serious: Yes (Hospitalization)
  Sender: FDA-Public Use
  Company Number: EG-ELI_LILLY_AND_COMPANY-EG201910010840

PATIENT
  Sex: Male

DRUGS (9)
  1. INSULIN, LISPRO [Suspect]
     Active Substance: INSULIN LISPRO
     Indication: DIABETES MELLITUS
     Dosage: 29 INTERNATIONAL UNIT, EACH MORNING
     Route: 058
     Dates: start: 2013, end: 201909
  2. INSULIN, LISPRO [Suspect]
     Active Substance: INSULIN LISPRO
     Dosage: 14 INTERNATIONAL UNIT, EACH EVENING
     Route: 058
     Dates: start: 2013, end: 201909
  3. GLUCOPHAGE [Concomitant]
     Active Substance: METFORMIN HYDROCHLORIDE
     Indication: DIABETES MELLITUS
  4. INSULIN, LISPRO [Suspect]
     Active Substance: INSULIN LISPRO
     Dosage: 7 INTERNATIONAL UNIT, DAILY, BEFORE LUNCH
     Route: 058
     Dates: start: 2013, end: 201909
  5. INSULIN, LISPRO [Suspect]
     Active Substance: INSULIN LISPRO
     Indication: DIABETES MELLITUS
     Dosage: 15 INTERNATIONAL UNIT, EACH MORNING
     Route: 058
     Dates: start: 20190929
  6. HUMALOG KWIKPEN [Suspect]
     Active Substance: INSULIN LISPRO
     Indication: DIABETES MELLITUS
     Dosage: 6 INTERNATIONAL UNIT, TID
     Route: 058
     Dates: start: 201909, end: 20190929
  7. INSULIN, LISPRO [Suspect]
     Active Substance: INSULIN LISPRO
     Dosage: 20 INTERNATIONAL UNIT, DAILY, BEFORE LUNCH
     Route: 058
     Dates: start: 20190929
  8. INSULIN, LISPRO [Suspect]
     Active Substance: INSULIN LISPRO
     Dosage: 15 INTERNATIONAL UNIT, EACH EVENING
     Route: 058
     Dates: start: 20190929
  9. TRESIBA [Concomitant]
     Active Substance: INSULIN DEGLUDEC
     Indication: DIABETES MELLITUS
     Dosage: 10 INTERNATIONAL UNIT, DAILY

REACTIONS (5)
  - Haemoglobin decreased [Recovered/Resolved]
  - Enzyme level increased [Recovered/Resolved]
  - Flank pain [Unknown]
  - Gastric ulcer [Recovered/Resolved]
  - Dermatitis allergic [Not Recovered/Not Resolved]

NARRATIVE: CASE EVENT DATE: 201905
